FAERS Safety Report 9017513 (Version 2)
Quarter: 2013Q1

REPORT INFORMATION
  Report Type: Other
  Country: NO (occurrence: NO)
  Receive Date: 20130117
  Receipt Date: 20130205
  Transmission Date: 20140127
  Serious: Yes (Life-Threatening)
  Sender: FDA-Public Use
  Company Number: NO-WATSON-2013-00454

PATIENT
  Age: 69 Year
  Sex: Male

DRUGS (4)
  1. DOXYCYCLINE [Suspect]
     Indication: ANTIBIOTIC PROPHYLAXIS
     Dosage: 100 MG, UNKNOWN
     Route: 065
     Dates: start: 20121219, end: 20121219
  2. SUXAMETHONIUM [Suspect]
     Indication: ANAESTHESIA PROCEDURE
     Dosage: 100 MG, UNKNOWN
     Route: 042
     Dates: start: 20121219, end: 20121219
  3. THIOPENTAL [Concomitant]
     Indication: ANAESTHESIA PROCEDURE
     Dosage: 400 MG, UNKNOWN
     Route: 065
     Dates: start: 20121219, end: 20121219
  4. FENTANYL [Concomitant]
     Indication: PAIN
     Dosage: 200 MICROGRAMS
     Route: 065
     Dates: start: 20121219, end: 20121219

REACTIONS (2)
  - Bronchospasm [Unknown]
  - Blood pressure decreased [Unknown]
